FAERS Safety Report 7171931-7 (Version None)
Quarter: 2010Q4

REPORT INFORMATION
  Report Type: 
  Country: None (occurrence: None)
  Receive Date: 20101217
  Receipt Date: 20101209
  Transmission Date: 20110411
  Serious: Yes (Disabling)
  Sender: FDA-Public Use
  Company Number: US-MERCK-1001USA01810

PATIENT
  Age: 71 Year
  Sex: Female
  Weight: 56 kg

DRUGS (3)
  1. FOSAMAX [Suspect]
     Indication: OSTEOPOROSIS
     Route: 048
     Dates: start: 20010101, end: 20080101
  2. CALCIUM (UNSPECIFIED) [Concomitant]
     Route: 065
  3. VITAMIN D (UNSPECIFIED) [Concomitant]
     Route: 065

REACTIONS (25)
  - ADVERSE DRUG REACTION [None]
  - ARTHRALGIA [None]
  - BACK PAIN [None]
  - BLOOD CHOLESTEROL INCREASED [None]
  - CHRONIC OBSTRUCTIVE PULMONARY DISEASE [None]
  - COUGH [None]
  - CYST [None]
  - DENTAL CARIES [None]
  - DEPRESSION [None]
  - DYSPNOEA [None]
  - FATIGUE [None]
  - FISTULA DISCHARGE [None]
  - GINGIVAL BLEEDING [None]
  - GROIN PAIN [None]
  - HYPERTENSION [None]
  - IMPAIRED HEALING [None]
  - JAW DISORDER [None]
  - LUMBAR RADICULOPATHY [None]
  - MUSCLE SPASMS [None]
  - MYALGIA [None]
  - ORAL INFECTION [None]
  - OSTEONECROSIS OF JAW [None]
  - TOOTH ABSCESS [None]
  - TOOTH DISORDER [None]
  - TRIGGER FINGER [None]
